FAERS Safety Report 6692128-0 (Version None)
Quarter: 2010Q2

REPORT INFORMATION
  Report Type: 
  Country: None (occurrence: None)
  Receive Date: 20100422
  Receipt Date: 20090706
  Transmission Date: 20101027
  Serious: No
  Sender: FDA-Public Use
  Company Number: US-ASTRAZENECA-2009UW18686

PATIENT
  Sex: Female
  Weight: 67.1 kg

DRUGS (2)
  1. TOPROL-XL [Suspect]
     Route: 048
     Dates: start: 20090101
  2. CLONIDINE [Concomitant]

REACTIONS (2)
  - CHILLS [None]
  - JOINT SWELLING [None]
